FAERS Safety Report 16645631 (Version 2)
Quarter: 2019Q3

REPORT INFORMATION
  Report Type: Report from Study
  Country: US (occurrence: US)
  Receive Date: 20190730
  Receipt Date: 20190830
  Transmission Date: 20191004
  Serious: Yes (Other)
  Sender: FDA-Public Use
  Company Number: US-ROCHE-2357975

PATIENT
  Age: 49 Year
  Sex: Female
  Weight: 79.45 kg

DRUGS (1)
  1. OCREVUS [Suspect]
     Active Substance: OCRELIZUMAB
     Indication: RELAPSING-REMITTING MULTIPLE SCLEROSIS
     Dosage: RECENT DATE OF TREATMENT: 01/APR/2019
     Route: 065
     Dates: start: 201804

REACTIONS (11)
  - Pain [Recovered/Resolved]
  - Weight increased [Not Recovered/Not Resolved]
  - Feeling cold [Not Recovered/Not Resolved]
  - Throat irritation [Recovered/Resolved]
  - Pruritus [Not Recovered/Not Resolved]
  - Pain in extremity [Recovered/Resolved]
  - Influenza [Recovered/Resolved]
  - Rash [Recovered/Resolved]
  - Herpes zoster [Recovered/Resolved]
  - Back pain [Recovered/Resolved]
  - Urinary tract infection [Not Recovered/Not Resolved]

NARRATIVE: CASE EVENT DATE: 201804
